FAERS Safety Report 24660097 (Version 1)
Quarter: 2024Q4

REPORT INFORMATION
  Report Type: Spontaneous
  Country: US (occurrence: US)
  Receive Date: 20241125
  Receipt Date: 20241125
  Transmission Date: 20250115
  Serious: No
  Sender: TAKEDA
  Company Number: US-TAKEDA-2024TUS117552

PATIENT
  Age: 65 Year
  Sex: Female

DRUGS (1)
  1. TRINTELLIX [Suspect]
     Active Substance: VORTIOXETINE HYDROBROMIDE
     Indication: Product used for unknown indication
     Dosage: 5 MILLIGRAM

REACTIONS (5)
  - Paraesthesia oral [Unknown]
  - Hypoaesthesia oral [Unknown]
  - Feeling jittery [Unknown]
  - Headache [Unknown]
  - Nausea [Unknown]
